FAERS Safety Report 6713939-9 (Version None)
Quarter: 2010Q2

REPORT INFORMATION
  Report Type: 
  Country: None (occurrence: None)
  Receive Date: 20100506
  Receipt Date: 20100429
  Transmission Date: 20101027
  Serious: Yes (Hospitalization)
  Sender: FDA-Public Use
  Company Number: CA-ABBOTT-10P-028-0640327-00

PATIENT
  Sex: Male

DRUGS (5)
  1. LUPRON DEPOT [Suspect]
     Indication: PROSTATE CANCER
     Dosage: 30 MG - 4 MONTH DEPOT
     Dates: start: 20030912, end: 20100106
  2. ANACID [Concomitant]
     Indication: DRUG USE FOR UNKNOWN INDICATION
  3. GLYBURIDE [Concomitant]
     Indication: DRUG USE FOR UNKNOWN INDICATION
  4. BLOOD PRESSURE PILL [Concomitant]
     Indication: DRUG USE FOR UNKNOWN INDICATION
  5. METFORMIN [Concomitant]
     Indication: DRUG USE FOR UNKNOWN INDICATION

REACTIONS (2)
  - BLOOD GLUCOSE DECREASED [None]
  - DRUG DOSE OMISSION [None]
